FAERS Safety Report 9991865 (Version 1)
Quarter: 2014Q1

REPORT INFORMATION
  Report Type: Report from Study
  Country: US (occurrence: US)
  Receive Date: 20140310
  Receipt Date: 20140310
  Transmission Date: 20141002
  Serious: No
  Sender: FDA-Public Use
  Company Number: PHEH2014US003924

PATIENT
  Sex: Female

DRUGS (4)
  1. TASIGNA [Suspect]
     Indication: CHRONIC MYELOID LEUKAEMIA
     Dosage: 300 MG, Q12H
     Route: 048
     Dates: start: 20130814
  2. RANITIDINE [Concomitant]
  3. BENADRYL [Concomitant]
     Indication: ALLERGIC SINUSITIS
  4. HYDROCORTISONE [Concomitant]

REACTIONS (1)
  - Feeling abnormal [Unknown]
